FAERS Safety Report 10203941 (Version 4)
Quarter: 2017Q4

REPORT INFORMATION
  Report Type: Spontaneous
  Country: CH (occurrence: CH)
  Receive Date: 20140529
  Receipt Date: 20171207
  Transmission Date: 20180320
  Serious: Yes (Death, Life-Threatening, Hospitalization, Other)
  Sender: FDA-Public Use
  Company Number: CH-BAYER-2014-074016

PATIENT
  Age: 42 Year
  Sex: Male
  Weight: 98 kg

DRUGS (2)
  1. GADOVIST [Suspect]
     Active Substance: GADOBUTROL
     Indication: ABDOMEN SCAN
  2. GADOVIST [Suspect]
     Active Substance: GADOBUTROL
     Indication: RENAL SCAN
     Dosage: 10 ML, ONCE
     Route: 042
     Dates: start: 20140515, end: 20140515

REACTIONS (12)
  - Anaphylactic shock [Fatal]
  - Brain oedema [Fatal]
  - Cardiac arrest [Fatal]
  - Coma [None]
  - Haemorrhage subcutaneous [None]
  - Rib fracture [None]
  - Upper respiratory tract inflammation [Fatal]
  - Cyanosis [Fatal]
  - Shock [Fatal]
  - Dyspnoea [Fatal]
  - Brain injury [Fatal]
  - Respiratory paralysis [Fatal]

NARRATIVE: CASE EVENT DATE: 20140515
